FAERS Safety Report 22517599 (Version 1)
Quarter: 2023Q2

REPORT INFORMATION
  Report Type: Spontaneous
  Country: US (occurrence: US)
  Receive Date: 20230604
  Receipt Date: 20230604
  Transmission Date: 20230721
  Serious: Yes (Life-Threatening, Hospitalization, Other)
  Sender: FDA-Public Use
  Company Number: US-MLMSERVICE-20230523-4301130-2

PATIENT
  Age: 57 Year
  Sex: Male

DRUGS (3)
  1. METHYLPREDNISOLONE [Suspect]
     Active Substance: METHYLPREDNISOLONE
     Indication: COVID-19
     Dosage: UNK
     Route: 065
  2. BARICITINIB [Concomitant]
     Active Substance: BARICITINIB
     Indication: COVID-19
     Dosage: UNK
     Route: 065
  3. REMDESIVIR [Concomitant]
     Active Substance: REMDESIVIR
     Indication: COVID-19
     Dosage: UNK
     Route: 065

REACTIONS (3)
  - Abscess [Recovering/Resolving]
  - Diverticulitis intestinal perforated [Recovering/Resolving]
  - Intestinal barrier dysfunction [Recovering/Resolving]
